FAERS Safety Report 8856768 (Version 1)
Quarter: 2012Q4

REPORT INFORMATION
  Report Type: 
  Country: US (occurrence: US)
  Receive Date: 20121023
  Receipt Date: 20121023
  Transmission Date: 20130627
  Serious: No
  Sender: FDA-Public Use
  Company Number: US-AMGEN-USASP2012056737

PATIENT
  Sex: Male
  Weight: 113.38 kg

DRUGS (8)
  1. ENBREL [Suspect]
     Indication: PRODUCT USED FOR UNKNOWN INDICATION
     Dosage: 50 mg, qwk
     Route: 058
  2. FOLIC ACID [Concomitant]
     Dosage: UNK
  3. METHOTREXAT                        /00113801/ [Concomitant]
     Dosage: 2.5 mg, UNK
  4. MELOXICAM [Concomitant]
     Dosage: 15 mg, UNK
  5. METOPROLOL [Concomitant]
     Dosage: 25 mg, ER UNK
  6. HYDROCHLOROTH [Concomitant]
     Dosage: 25 mg, UNK
  7. LISINOPRIL [Concomitant]
     Dosage: 40 mg, UNK
  8. ASPIRIN [Concomitant]
     Dosage: 81 mg, UNK

REACTIONS (1)
  - Sinusitis [Unknown]
